FAERS Safety Report 15710453 (Version 3)
Quarter: 2019Q2

REPORT INFORMATION
  Report Type: Report from Study
  Country: MX (occurrence: MX)
  Receive Date: 20181211
  Receipt Date: 20190425
  Transmission Date: 20190711
  Serious: Yes (Hospitalization, Disabling, Other)
  Sender: FDA-Public Use
  Company Number: MX-EXELIXIS-XL18418017571

PATIENT
  Age: 79 Year
  Sex: Female
  Weight: 78 kg

DRUGS (25)
  1. OMEPRAZOL                          /00661201/ [Concomitant]
     Active Substance: OMEPRAZOLE
     Indication: PRODUCT USED FOR UNKNOWN INDICATION
     Dosage: 20 MILLIGRAM
     Route: 048
     Dates: start: 20170717
  2. NIVOLUMAB [Suspect]
     Active Substance: NIVOLUMAB
     Indication: RENAL CELL CARCINOMA
     Dosage: 240 MG, UNK
     Route: 042
     Dates: start: 20180717, end: 20181024
  3. METFORMINE                         /00082701/ [Concomitant]
     Active Substance: METFORMIN HYDROCHLORIDE
     Indication: PRODUCT USED FOR UNKNOWN INDICATION
     Dosage: 850 MILLIGRAM
     Route: 048
     Dates: start: 19970101
  4. CELECOXIB. [Concomitant]
     Active Substance: CELECOXIB
     Dosage: 200 MILLIGRAM
     Route: 048
     Dates: start: 20180829, end: 20181128
  5. ITOPRIDE [Concomitant]
     Active Substance: ITOPRIDE
     Indication: PRODUCT USED FOR UNKNOWN INDICATION
     Dosage: 150 MILLIGRAM
     Route: 048
     Dates: start: 20180807
  6. LOSARTAN. [Concomitant]
     Active Substance: LOSARTAN
     Indication: PRODUCT USED FOR UNKNOWN INDICATION
     Dosage: 80 MILLIGRAM
     Route: 048
     Dates: start: 20180822
  7. CELECOXIB. [Concomitant]
     Active Substance: CELECOXIB
     Indication: PRODUCT USED FOR UNKNOWN INDICATION
     Dosage: 200 MILLIGRAM
     Route: 048
     Dates: start: 20180829
  8. CABOZANTINIB [Suspect]
     Active Substance: CABOZANTINIB
     Indication: RENAL CELL CARCINOMA
     Dosage: 40 MG, UNK
     Route: 042
     Dates: start: 20180717, end: 20181010
  9. LACTULOSE. [Concomitant]
     Active Substance: LACTULOSE
     Indication: PRODUCT USED FOR UNKNOWN INDICATION
     Dosage: 10 G, UNK
     Route: 048
     Dates: start: 20180807
  10. METOCLOPRAMIDE. [Concomitant]
     Active Substance: METOCLOPRAMIDE
     Indication: PRODUCT USED FOR UNKNOWN INDICATION
     Dosage: 30 MILLIGRAM
     Route: 048
     Dates: start: 20180913
  11. LACTULOSE. [Concomitant]
     Active Substance: LACTULOSE
     Dosage: 10 G, UNK
     Route: 048
     Dates: start: 20180927
  12. PREDNISONE. [Concomitant]
     Active Substance: PREDNISONE
     Indication: PRODUCT USED FOR UNKNOWN INDICATION
     Dosage: 10 MILLIGRAM
     Route: 048
     Dates: start: 20180913
  13. PREDNISONE. [Concomitant]
     Active Substance: PREDNISONE
     Dosage: 10 MILLIGRAM
     Route: 048
     Dates: start: 20180913, end: 20181205
  14. LEVOFLOXACINE                      /01278901/ [Concomitant]
     Active Substance: LEVOFLOXACIN
     Dosage: 750 MILLIGRAM
     Route: 048
     Dates: start: 20181020, end: 20181027
  15. KETOROLAC [Concomitant]
     Active Substance: KETOROLAC\KETOROLAC TROMETHAMINE
     Indication: PRODUCT USED FOR UNKNOWN INDICATION
     Dosage: 60 MILLIGRAM
     Route: 048
     Dates: start: 20181022, end: 20181022
  16. TRAMADOL + PARACETAMOL [Concomitant]
     Active Substance: ACETAMINOPHEN\TRAMADOL
     Indication: PRODUCT USED FOR UNKNOWN INDICATION
     Dosage: 100 MILLIGRAM
     Route: 048
     Dates: start: 20181018, end: 20181019
  17. METFORMINE                         /00082701/ [Concomitant]
     Active Substance: METFORMIN HYDROCHLORIDE
     Dosage: 850 MILLIGRAM
     Route: 048
     Dates: start: 19970101, end: 20190130
  18. PAROXETINE. [Concomitant]
     Active Substance: PAROXETINE
     Indication: PRODUCT USED FOR UNKNOWN INDICATION
     Dosage: 20 MG, UNK
     Route: 048
     Dates: start: 20180814
  19. LEVOTHYROXINE. [Concomitant]
     Active Substance: LEVOTHYROXINE
     Indication: PRODUCT USED FOR UNKNOWN INDICATION
     Dosage: 50 MILLIGRAM
     Route: 048
     Dates: start: 20180725
  20. PAROXETINE. [Concomitant]
     Active Substance: PAROXETINE
     Route: 048
     Dates: start: 20180829
  21. SENOSIDE [Concomitant]
     Indication: PRODUCT USED FOR UNKNOWN INDICATION
     Dosage: 8.6000004 MILLIGRAM
     Route: 048
     Dates: start: 20181010
  22. SENOSIDE [Concomitant]
     Dosage: 8.6 MILLIGRAM
     Route: 048
     Dates: start: 20181010, end: 20181205
  23. LEVOFLOXACINE                      /01278901/ [Concomitant]
     Active Substance: LEVOFLOXACIN
     Indication: PRODUCT USED FOR UNKNOWN INDICATION
     Dosage: 750 MILLIGRAM
     Route: 048
     Dates: start: 20180920
  24. METOCLOPRAMIDE. [Concomitant]
     Active Substance: METOCLOPRAMIDE
     Dosage: 30 MILLIGRAM
     Route: 048
     Dates: start: 20180913, end: 20181205
  25. INSULINE NPH [Concomitant]
     Active Substance: INSULIN PORK\INSULIN PURIFIED PORK
     Indication: PRODUCT USED FOR UNKNOWN INDICATION
     Dosage: 36 UNIT, UNK
     Route: 058
     Dates: start: 20171001

REACTIONS (3)
  - Adrenal insufficiency [Recovered/Resolved]
  - Diarrhoea [Recovered/Resolved]
  - Syncope [Recovered/Resolved]

NARRATIVE: CASE EVENT DATE: 20181024
